FAERS Safety Report 9478021 (Version 2)
Quarter: 2013Q3

REPORT INFORMATION
  Report Type: Report from Study
  Country: BR (occurrence: BR)
  Receive Date: 20130827
  Receipt Date: 20130924
  Transmission Date: 20140515
  Serious: Yes (Death, Hospitalization, Other)
  Sender: FDA-Public Use
  Company Number: PHHY2013BR091716

PATIENT
  Sex: Male
  Weight: 78 kg

DRUGS (4)
  1. EXELON PATCH [Suspect]
     Indication: PARKINSON^S DISEASE
     Dosage: 1 PATCH A DAY
     Route: 062
     Dates: start: 20130802
  2. SIFROL [Concomitant]
     Indication: PARKINSON^S DISEASE
     Dosage: 4 DF, DAILY
     Route: 048
     Dates: end: 201308
  3. PROLOPA [Concomitant]
     Indication: PARKINSON^S DISEASE
     Dosage: 4 DF, DAILY
     Route: 048
     Dates: start: 2003, end: 201308
  4. SERTRALINE [Concomitant]
     Indication: DEPRESSION
     Dosage: UNK UKN, UNK

REACTIONS (7)
  - Pneumonia [Fatal]
  - Respiratory failure [Fatal]
  - Parkinson^s disease [Fatal]
  - Pneumonia aspiration [Unknown]
  - Foreign body aspiration [Unknown]
  - Feeling abnormal [Unknown]
  - Asthenia [Unknown]
